FAERS Safety Report 24813704 (Version 1)
Quarter: 2025Q1

REPORT INFORMATION
  Report Type: Spontaneous
  Country: US (occurrence: US)
  Receive Date: 20250107
  Receipt Date: 20250107
  Transmission Date: 20250408
  Serious: Yes (Other)
  Sender: PROCTER AND GAMBLE
  Company Number: US-PROCTER+GAMBLE-PH24009813

PATIENT
  Age: 48 Year
  Sex: Female

DRUGS (1)
  1. VICKS SINEX 12 HOUR DECONGESTANT ULTRA FINE MIST [Suspect]
     Active Substance: OXYMETAZOLINE HYDROCHLORIDE
     Indication: Nasal congestion
     Dosage: 1 DOSAGE FORM, 1 ONLY (1 SQUEEZE)
     Route: 045
     Dates: start: 20241224, end: 20241224

REACTIONS (11)
  - Loss of consciousness [Recovered/Resolved]
  - Blood pressure increased [Unknown]
  - Cardiac flutter [Recovered/Resolved]
  - Angina pectoris [Recovered/Resolved]
  - Facial pain [Recovered/Resolved]
  - Headache [Recovered/Resolved]
  - Nausea [Recovered/Resolved]
  - Dizziness [Recovered/Resolved]
  - Visual impairment [Recovered/Resolved]
  - Fall [Unknown]
  - Vomiting [Recovered/Resolved]

NARRATIVE: CASE EVENT DATE: 20241201
